FAERS Safety Report 5932552-4 (Version None)
Quarter: 2008Q4

REPORT INFORMATION
  Report Type: 
  Country: None (occurrence: None)
  Receive Date: 20081009
  Receipt Date: 20071010
  Transmission Date: 20090506
  Serious: Yes (Hospitalization)
  Sender: FDA-Public Use
  Company Number: PHEH2007US13488

PATIENT
  Age: 70 Week
  Sex: Female
  Weight: 63 kg

DRUGS (8)
  1. ZOMETA [Suspect]
     Indication: OSTEOPOROSIS
     Dosage: 4 MG, ONCE/SINGLE, INTRAVENOUS
     Route: 042
     Dates: start: 20071005, end: 20071005
  2. NADOLOL [Concomitant]
  3. LISINOPRIL [Concomitant]
  4. SYNTHROID [Concomitant]
  5. PAXIL [Concomitant]
  6. GABAPENTIN [Concomitant]
  7. LASIX [Concomitant]
  8. ZEGERID [Concomitant]

REACTIONS (2)
  - CONFUSIONAL STATE [None]
  - HYPOTENSION [None]
